FAERS Safety Report 10537651 (Version 1)
Quarter: 2014Q4

REPORT INFORMATION
  Report Type: Spontaneous
  Country: US (occurrence: None)
  Receive Date: 20141022
  Receipt Date: 20141022
  Transmission Date: 20150529
  Serious: Yes (Life-Threatening)
  Sender: FDA-Public Use
  Company Number: None

PATIENT
  Age: 60 Year
  Sex: Male
  Weight: 67.59 kg

DRUGS (9)
  1. HYDRALAZINE [Concomitant]
     Active Substance: HYDRALAZINE HYDROCHLORIDE
  2. ASA [Concomitant]
     Active Substance: ASPIRIN
  3. SPIRONLACTONE [Concomitant]
  4. ELIQUIS [Suspect]
     Active Substance: APIXABAN
     Indication: ATRIAL FIBRILLATION
     Route: 048
     Dates: start: 20140701, end: 20141021
  5. LASIX [Concomitant]
     Active Substance: FUROSEMIDE
  6. LANOXIN [Concomitant]
     Active Substance: DIGOXIN
  7. ISORDIL [Concomitant]
     Active Substance: ISOSORBIDE DINITRATE
  8. SYNTHROID [Concomitant]
     Active Substance: LEVOTHYROXINE SODIUM
  9. METOPROLOL [Concomitant]
     Active Substance: METOPROLOL

REACTIONS (2)
  - Upper gastrointestinal haemorrhage [None]
  - Cardio-respiratory arrest [None]

NARRATIVE: CASE EVENT DATE: 20141021
